FAERS Safety Report 19299764 (Version 3)
Quarter: 2021Q3

REPORT INFORMATION
  Report Type: Spontaneous
  Country: US (occurrence: US)
  Receive Date: 20210524
  Receipt Date: 20210818
  Transmission Date: 20211014
  Serious: No
  Sender: FDA-Public Use
  Company Number: US-LUPIN PHARMACEUTICALS INC.-2021-07302

PATIENT
  Age: 89 Year
  Sex: Male

DRUGS (1)
  1. LISINOPRIL TABLETS USP, 10MG [Suspect]
     Active Substance: LISINOPRIL
     Indication: PRODUCT USED FOR UNKNOWN INDICATION
     Dosage: UNK UNK, QD
     Route: 048
     Dates: start: 202103

REACTIONS (4)
  - Product packaging quantity issue [Unknown]
  - No adverse event [Unknown]
  - Extra dose administered [Unknown]
  - Product dose omission in error [Unknown]
